FAERS Safety Report 5647015-3 (Version None)
Quarter: 2008Q1

REPORT INFORMATION
  Report Type: 
  Country: None (occurrence: None)
  Receive Date: 20080303
  Receipt Date: 20080220
  Transmission Date: 20080703
  Serious: Yes (Hospitalization)
  Sender: FDA-Public Use
  Company Number: B0510082A

PATIENT
  Sex: Female

DRUGS (5)
  1. AUGMENTIN '125' [Suspect]
     Route: 048
     Dates: start: 20071024, end: 20071031
  2. REVLIMID [Suspect]
     Indication: MULTIPLE MYELOMA
     Route: 048
     Dates: start: 20071026, end: 20071029
  3. VELCADE [Suspect]
     Indication: MULTIPLE MYELOMA
     Route: 042
     Dates: start: 20070914, end: 20071029
  4. OFLOCET [Suspect]
     Route: 048
     Dates: start: 20071024, end: 20071031
  5. DEXAMETHASONE TAB [Concomitant]
     Indication: MULTIPLE MYELOMA
     Route: 065
     Dates: start: 20070914

REACTIONS (5)
  - ANAEMIA [None]
  - HYPERTHERMIA [None]
  - PURPURA [None]
  - RASH ERYTHEMATOUS [None]
  - RASH MORBILLIFORM [None]
